FAERS Safety Report 4558485-6 (Version None)
Quarter: 2005Q1

REPORT INFORMATION
  Report Type: 
  Country: None (occurrence: None)
  Receive Date: 20050119
  Receipt Date: 20050113
  Transmission Date: 20050727
  Serious: Yes (Hospitalization)
  Sender: FDA-Public Use
  Company Number: 2005-01-0775

PATIENT
  Age: 37 Year
  Sex: Male

DRUGS (3)
  1. PEG-INTRON [Suspect]
     Indication: HEPATITIS C
     Dosage: 80 MCG QW SUBCUTANEOUS
     Route: 058
     Dates: start: 20040331
  2. REBETOL [Suspect]
     Indication: HEPATITIS C
     Dosage: 1000 MCG QD ORAL
     Route: 048
     Dates: start: 20040331
  3. METHADONE HCL [Concomitant]

REACTIONS (3)
  - CHEST PAIN [None]
  - HAEMOPTYSIS [None]
  - PULMONARY EMBOLISM [None]
